FAERS Safety Report 11167005 (Version 1)
Quarter: 2015Q2

REPORT INFORMATION
  Report Type: Spontaneous
  Country: US (occurrence: None)
  Receive Date: 20150604
  Receipt Date: 20150604
  Transmission Date: 20150821
  Serious: No
  Sender: FDA-Public Use
  Company Number: None

PATIENT
  Age: 11 Year
  Sex: Male
  Weight: 41.4 kg

DRUGS (5)
  1. CYCLOPHOSPHAMIDE. [Suspect]
     Active Substance: CYCLOPHOSPHAMIDE
     Dates: end: 20130630
  2. VINCRISTINE SULFATE. [Suspect]
     Active Substance: VINCRISTINE SULFATE
     Dates: end: 20130705
  3. G-CSF (FILGRASTIM, AMGEN) [Suspect]
     Active Substance: FILGRASTIM
     Dates: end: 20130712
  4. ISOTRETINOIN [Suspect]
     Active Substance: ISOTRETINOIN
     Dates: end: 20140112
  5. CISPLATIN. [Suspect]
     Active Substance: CISPLATIN
     Dates: end: 20130628

REACTIONS (2)
  - Hepatic mass [None]
  - Osteosarcoma [None]

NARRATIVE: CASE EVENT DATE: 20150429
